FAERS Safety Report 6223769-2 (Version None)
Quarter: 2009Q2

REPORT INFORMATION
  Report Type: 
  Country: None (occurrence: None)
  Receive Date: 20090611
  Receipt Date: 20090319
  Transmission Date: 20091009
  Serious: No
  Sender: FDA-Public Use
  Company Number: US-ABBOTT-09P-163-0502765-00

PATIENT
  Sex: Female

DRUGS (7)
  1. HUMIRA [Suspect]
     Indication: CROHN'S DISEASE
     Dates: start: 20081229
  2. PREDNISONE [Concomitant]
     Indication: CROHN'S DISEASE
     Route: 048
  3. PREDNISONE [Concomitant]
  4. PREVACID [Concomitant]
     Indication: GASTROOESOPHAGEAL REFLUX DISEASE
     Route: 048
  5. IRON [Concomitant]
     Indication: BLOOD IRON DECREASED
     Dosage: IRON PILL
     Route: 048
  6. VITAMIN D [Concomitant]
     Indication: MEDICAL DIET
     Route: 048
  7. VITAMIN A [Concomitant]
     Indication: MEDICAL DIET
     Route: 048

REACTIONS (7)
  - ABDOMINAL DISTENSION [None]
  - DRUG INEFFECTIVE [None]
  - FLATULENCE [None]
  - GASTROINTESTINAL OEDEMA [None]
  - INJECTION SITE NODULE [None]
  - INJECTION SITE PRURITUS [None]
  - INJECTION SITE REACTION [None]
